FAERS Safety Report 12443754 (Version 1)
Quarter: 2016Q2

REPORT INFORMATION
  Report Type: Spontaneous
  Country: JP (occurrence: JP)
  Receive Date: 20160607
  Receipt Date: 20160607
  Transmission Date: 20160815
  Serious: Yes (Death, Other)
  Sender: FDA-Public Use
  Company Number: PHJP1999JP005647

PATIENT
  Age: 3 Year
  Sex: Male

DRUGS (3)
  1. TEGRETOL [Suspect]
     Active Substance: CARBAMAZEPINE
     Dosage: 100 MG, QD
     Dates: start: 19970625, end: 19970630
  2. TEGRETOL [Suspect]
     Active Substance: CARBAMAZEPINE
     Indication: PRODUCT USED FOR UNKNOWN INDICATION
     Dosage: 50 MG, QD
     Route: 065
     Dates: start: 19970611
  3. TEGRETOL [Suspect]
     Active Substance: CARBAMAZEPINE
     Dosage: 70 MG, QD
     Dates: start: 19970618

REACTIONS (3)
  - Drug-induced liver injury [Fatal]
  - Interstitial lung disease [Fatal]
  - Oculomucocutaneous syndrome [Fatal]
